FAERS Safety Report 7394052-7 (Version None)
Quarter: 2011Q2

REPORT INFORMATION
  Report Type: 
  Country: None (occurrence: None)
  Receive Date: 20110405
  Receipt Date: 20101020
  Transmission Date: 20111010
  Serious: No
  Sender: FDA-Public Use
  Company Number: US-AMGEN-USASP2010001317

PATIENT
  Age: 61 Year
  Sex: Female

DRUGS (3)
  1. NEULASTA [Suspect]
     Indication: CHEMOTHERAPY
     Dosage: UNK UNK, AFTER CHEMO
     Dates: start: 20080101
  2. CARBOPLATIN [Concomitant]
  3. TAXOL [Concomitant]

REACTIONS (3)
  - DYSPNOEA [None]
  - MUSCULOSKELETAL CHEST PAIN [None]
  - HYPOVENTILATION [None]
